FAERS Safety Report 8418197-5 (Version None)
Quarter: 2012Q2

REPORT INFORMATION
  Report Type: 
  Country: None (occurrence: None)
  Receive Date: 20120323
  Receipt Date: 20110413
  Transmission Date: 20120825
  Serious: Yes (Other)
  Sender: FDA-Public Use
  Company Number: 163-21880-11022874

PATIENT
  Age: 57 Year
  Sex: Female

DRUGS (15)
  1. REVLIMID [Suspect]
     Indication: MULTIPLE MYELOMA
     Dosage: 15 MG, 1 IN 1 D, PO
     Route: 048
     Dates: start: 20100501
  2. DEXAMETHASONE [Concomitant]
  3. FAMOTIDINE [Concomitant]
  4. TRIAMCINOLONE [Concomitant]
  5. MULTIVITAMIN FOR HER (MULTIVITAMINS) [Concomitant]
  6. AZITHROMYCIN [Concomitant]
  7. CITALOPRAM HYDROBROMIDE [Concomitant]
  8. SIMVASTATIN [Concomitant]
  9. HYDROXYZINE [Concomitant]
  10. PEPCID [Concomitant]
  11. STOOL SOFTENER (DOCUSATE SODIUM) [Concomitant]
  12. METHADONE HCL [Concomitant]
  13. AMLODIPINE [Concomitant]
  14. MORPHINE SULFATE (MORPHNIE SULFATE) [Concomitant]
  15. ASPIRIN [Concomitant]

REACTIONS (1)
  - IRON DEFICIENCY ANAEMIA [None]
